FAERS Safety Report 8003465-1 (Version None)
Quarter: 2011Q4

REPORT INFORMATION
  Report Type: 
  Country: None (occurrence: None)
  Receive Date: 20111222
  Receipt Date: 20111215
  Transmission Date: 20120403
  Serious: No
  Sender: FDA-Public Use
  Company Number: US-B.I. PHARMACEUTICALS,INC./RIDGEFIELD-2011-BP-25496BP

PATIENT
  Age: 66 Year
  Sex: Female

DRUGS (1)
  1. NON-BI DRUG (LIPOFLAVINOIDS) [Suspect]

REACTIONS (2)
  - STOMATITIS [None]
  - MOUTH ULCERATION [None]
